FAERS Safety Report 5856086-0 (Version None)
Quarter: 2008Q3

REPORT INFORMATION
  Report Type: 
  Country: None (occurrence: None)
  Receive Date: 20080825
  Receipt Date: 20080819
  Transmission Date: 20090109
  Serious: Yes (Death)
  Sender: FDA-Public Use
  Company Number: US-CELGENEUS-163-21880-08061413

PATIENT
  Sex: Male

DRUGS (2)
  1. REVLIMID [Suspect]
     Indication: MULTIPLE MYELOMA
     Route: 048
     Dates: start: 20080428, end: 20080501
  2. REVLIMID [Suspect]
     Route: 048
     Dates: start: 20080529, end: 20080601

REACTIONS (2)
  - DEATH [None]
  - RASH [None]
